FAERS Safety Report 8048684-3 (Version None)
Quarter: 2012Q1

REPORT INFORMATION
  Report Type: 
  Country: None (occurrence: None)
  Receive Date: 20120117
  Receipt Date: 20120110
  Transmission Date: 20120608
  Serious: Yes (Death, Hospitalization)
  Sender: FDA-Public Use
  Company Number: US-JNJFOC-20111202991

PATIENT
  Sex: Male
  Weight: 70 kg

DRUGS (9)
  1. NYQUIL [Concomitant]
     Route: 048
     Dates: start: 20081120
  2. CHANTIX [Concomitant]
     Route: 048
     Dates: start: 20070611
  3. GOLIMUMAB [Suspect]
     Indication: RHEUMATOID ARTHRITIS
     Route: 058
     Dates: start: 20070119
  4. HYDROCHLOROTHIAZIDE [Concomitant]
     Route: 048
     Dates: start: 20110408
  5. GOLIMUMAB [Suspect]
     Route: 058
     Dates: end: 20111024
  6. NAPROXEN (ALEVE) [Concomitant]
     Route: 048
     Dates: start: 20081003, end: 20111129
  7. NIASPAN [Concomitant]
     Route: 048
     Dates: start: 20081003, end: 20111129
  8. ASPIRIN [Concomitant]
     Route: 048
     Dates: start: 20100729, end: 20111129
  9. MULTI-VITAMINS [Concomitant]
     Route: 048

REACTIONS (2)
  - LUNG ADENOCARCINOMA STAGE IV [None]
  - ABDOMINAL PAIN [None]
